FAERS Safety Report 18225477 (Version 5)
Quarter: 2025Q1

REPORT INFORMATION
  Report Type: Spontaneous
  Country: US (occurrence: US)
  Receive Date: 20200903
  Receipt Date: 20250209
  Transmission Date: 20250409
  Serious: No
  Sender: BRISTOL-MYERS SQUIBB COMPANY
  Company Number: US-BRISTOL-MYERS SQUIBB COMPANY-BMS-2020-071504

PATIENT
  Age: 34 Year
  Sex: Female

DRUGS (3)
  1. DASATINIB [Suspect]
     Active Substance: DASATINIB
     Indication: Chronic myeloid leukaemia
     Dosage: 50 MILLIGRAM, QD
     Route: 048
     Dates: start: 20170706
  2. DASATINIB [Suspect]
     Active Substance: DASATINIB
     Dosage: 50 MILLIGRAM, QD
     Route: 048
     Dates: start: 20141014, end: 20191022
  3. DASATINIB [Suspect]
     Active Substance: DASATINIB
     Route: 048
     Dates: start: 201610

REACTIONS (6)
  - Nausea [Unknown]
  - Diarrhoea [Unknown]
  - Fatigue [Unknown]
  - Vomiting [Unknown]
  - Skin swelling [Unknown]
  - Erythema [Unknown]
